FAERS Safety Report 15950878 (Version 1)
Quarter: 2019Q1

REPORT INFORMATION
  Report Type: Spontaneous
  Country: US (occurrence: US)
  Receive Date: 20190211
  Receipt Date: 20190211
  Transmission Date: 20190417
  Serious: No
  Sender: FDA-Public Use
  Company Number: US-COVIS PHARMA B.V.-2018COV03608

PATIENT
  Sex: Male

DRUGS (2)
  1. RILUTEK [Suspect]
     Active Substance: RILUZOLE
  2. NUEDEXTA [Suspect]
     Active Substance: DEXTROMETHORPHAN HYDROBROMIDE\QUINIDINE SULFATE

REACTIONS (2)
  - Choking [Unknown]
  - Hypoaesthesia oral [Unknown]
